FAERS Safety Report 6745695-2 (Version None)
Quarter: 2010Q2

REPORT INFORMATION
  Report Type: 
  Country: None (occurrence: None)
  Receive Date: 20100528
  Receipt Date: 20100521
  Transmission Date: 20101027
  Serious: Yes (Other)
  Sender: FDA-Public Use
  Company Number: US-B.I. PHARMACEUTICALS,INC./RIDGEFIELD-2010-BP-05905PF

PATIENT
  Sex: Female

DRUGS (5)
  1. SPIRIVA [Suspect]
     Indication: CHRONIC OBSTRUCTIVE PULMONARY DISEASE
     Dosage: 18 MG
     Route: 055
     Dates: start: 20040101
  2. ZYRTEC [Concomitant]
     Dosage: 10 MG
     Route: 048
     Dates: start: 20061101
  3. NEURONTIN [Concomitant]
     Dosage: 300 MG
     Route: 048
     Dates: start: 20061101
  4. REVATIO [Concomitant]
     Dosage: 60 MG
     Route: 048
     Dates: start: 20070201
  5. FORTEO [Concomitant]

REACTIONS (1)
  - PULMONARY HYPERTENSION [None]
